FAERS Safety Report 8193302-7 (Version None)
Quarter: 2012Q1

REPORT INFORMATION
  Report Type: 
  Country: None (occurrence: None)
  Receive Date: 20120308
  Receipt Date: 20120228
  Transmission Date: 20120608
  Serious: Yes (Life-Threatening)
  Sender: FDA-Public Use
  Company Number: FR-JNJFOC-20120214412

PATIENT
  Age: 37 Year
  Sex: Male

DRUGS (5)
  1. DEXCHLORPHENIRAMINE MALEATE [Concomitant]
     Indication: PREMEDICATION
     Dosage: 1 AMPOULE
     Route: 042
     Dates: start: 20111221
  2. REMICADE [Suspect]
     Route: 042
     Dates: start: 20081201, end: 20110926
  3. REMICADE [Suspect]
     Route: 042
     Dates: start: 20110926, end: 20111121
  4. REMICADE [Suspect]
     Indication: COLITIS ULCERATIVE
     Dosage: TOTAL DOSE:600MG
     Route: 042
     Dates: start: 20111221
  5. HYDROCORTISONE [Concomitant]
     Indication: PREMEDICATION
     Route: 042
     Dates: start: 20111221

REACTIONS (3)
  - URTICARIA [None]
  - HYPERTHERMIA [None]
  - INFUSION RELATED REACTION [None]
